FAERS Safety Report 8483882-6 (Version None)
Quarter: 2012Q2

REPORT INFORMATION
  Report Type: 
  Country: None (occurrence: None)
  Receive Date: 20120627
  Receipt Date: 20120627
  Transmission Date: 20120825
  Serious: No
  Sender: FDA-Public Use
  Company Number: None

PATIENT
  Sex: Male

DRUGS (1)
  1. ZYTIGA [Suspect]
     Indication: PROSTATE CANCER
     Dosage: 4 TABLETS DAILY PO
     Route: 048
     Dates: start: 20120331, end: 20120625

REACTIONS (1)
  - PROSTATIC SPECIFIC ANTIGEN INCREASED [None]
